FAERS Safety Report 5301823-7 (Version None)
Quarter: 2007Q2

REPORT INFORMATION
  Report Type: 
  Country: None (occurrence: None)
  Receive Date: 20070416
  Receipt Date: 20070416
  Transmission Date: 20071010
  Serious: Yes (Life-Threatening)
  Sender: FDA-Public Use
  Company Number: None

PATIENT
  Age: 50 Year
  Sex: Female
  Weight: 99.7913 kg

DRUGS (1)
  1. LIQUIDAILY OXY-ALOE CONTAINS 35% HYDROGEN PEROXIDE PHOENIX NUTRITIONAL [Suspect]
     Indication: CANDIDIASIS
     Dosage: 1 TO 2 OZ 3X PER DAY PO
     Route: 048
     Dates: start: 20070117, end: 20070228

REACTIONS (2)
  - GASTROINTESTINAL DISORDER [None]
  - GASTROOESOPHAGEAL REFLUX DISEASE [None]
